FAERS Safety Report 16982756 (Version 1)
Quarter: 2019Q4

REPORT INFORMATION
  Report Type: Spontaneous
  Country: FR (occurrence: FR)
  Receive Date: 20191101
  Receipt Date: 20191101
  Transmission Date: 20200122
  Serious: Yes (Other)
  Sender: FDA-Public Use
  Company Number: FR-ALLERGAN-1943890US

PATIENT
  Sex: Female
  Weight: 69 kg

DRUGS (3)
  1. MILNACIPRAN - BP [Suspect]
     Active Substance: MILNACIPRAN
     Indication: FIBROMYALGIA
     Dosage: 100 MG, QD
     Route: 048
     Dates: start: 201602, end: 201604
  2. ESOMEPRAZOL [Concomitant]
     Active Substance: ESOMEPRAZOLE
     Indication: HIATUS HERNIA
     Dosage: 80 MG, QD
     Route: 048
     Dates: start: 2015, end: 201609
  3. ALDACTAZINE [Concomitant]
     Active Substance: ALTHIAZIDE\SPIRONOLACTONE
     Indication: HYPERTENSION
     Dosage: 5.5 DF, QD
     Route: 048
     Dates: start: 201311

REACTIONS (2)
  - Torticollis [Not Recovered/Not Resolved]
  - Dystonia [Not Recovered/Not Resolved]

NARRATIVE: CASE EVENT DATE: 201602
